FAERS Safety Report 4476468-1 (Version None)
Quarter: 2004Q4

REPORT INFORMATION
  Report Type: 
  Country: None (occurrence: None)
  Receive Date: 20041012
  Receipt Date: 20040927
  Transmission Date: 20050328
  Serious: Yes (Other)
  Sender: FDA-Public Use
  Company Number: 2004025065

PATIENT
  Age: 36 Year
  Sex: Female

DRUGS (2)
  1. NORVASC [Suspect]
     Indication: HYPERTENSION
     Dosage: UNK (5 MG), ORAL
     Route: 048
     Dates: end: 20040601
  2. CONJUGATED ESTROGENS [Concomitant]

REACTIONS (2)
  - ALOPECIA [None]
  - RASH [None]
